FAERS Safety Report 8632286 (Version 4)
Quarter: 2012Q4

REPORT INFORMATION
  Report Type: 
  Country: US (occurrence: US)
  Receive Date: 20120625
  Receipt Date: 20120904
  Transmission Date: 20130627
  Serious: Yes (Other)
  Sender: FDA-Public Use
  Company Number: US-JNJFOC-20120608847

PATIENT
  Age: 52 None
  Sex: Female
  Weight: 63.5 kg

DRUGS (5)
  1. REMICADE [Suspect]
     Indication: COLITIS ULCERATIVE
     Route: 042
  2. REMICADE [Suspect]
     Indication: COLITIS ULCERATIVE
     Route: 042
     Dates: start: 20120419
  3. PREVACID [Suspect]
     Indication: GASTRIC DISORDER
     Route: 048
  4. PREVACID [Suspect]
     Indication: GASTRIC DISORDER
     Route: 048
  5. PREDNISONE [Concomitant]
     Indication: COLITIS
     Dosage: indecreasing dose of 5mg/week/oral
     Route: 048
     Dates: start: 201204, end: 20120608

REACTIONS (8)
  - Weight increased [Not Recovered/Not Resolved]
  - Acne pustular [Recovered/Resolved]
  - Chest pain [Not Recovered/Not Resolved]
  - Blepharitis [Not Recovered/Not Resolved]
  - Arthralgia [Not Recovered/Not Resolved]
  - Joint swelling [Not Recovered/Not Resolved]
  - Gastritis [Not Recovered/Not Resolved]
  - Diarrhoea [Not Recovered/Not Resolved]
